FAERS Safety Report 8484997-9 (Version None)
Quarter: 2012Q3

REPORT INFORMATION
  Report Type: 
  Country: None (occurrence: None)
  Receive Date: 20120703
  Receipt Date: 20120620
  Transmission Date: 20120928
  Serious: Yes (Hospitalization)
  Sender: FDA-Public Use
  Company Number: BR-TEVA-345255ISR

PATIENT
  Sex: Female
  Weight: 50 kg

DRUGS (4)
  1. BACLOFEN [Concomitant]
  2. MANTIDAN [Concomitant]
  3. COPAXONE [Suspect]
     Indication: MULTIPLE SCLEROSIS
     Dosage: 20 MILLIGRAM;
     Route: 058
     Dates: start: 20071122
  4. VENLAFAXINE [Concomitant]
     Indication: DEPRESSION

REACTIONS (2)
  - OSTEOPOROSIS [None]
  - SPINAL FRACTURE [None]
